FAERS Safety Report 6596296-0 (Version None)
Quarter: 2010Q1

REPORT INFORMATION
  Report Type: 
  Country: None (occurrence: None)
  Receive Date: 20100223
  Receipt Date: 20100211
  Transmission Date: 20100710
  Serious: Yes (Other)
  Sender: FDA-Public Use
  Company Number: PHHY2010CO07950

PATIENT
  Sex: Female

DRUGS (4)
  1. RASILEZ [Suspect]
     Indication: HYPERTENSION
     Dosage: 1 TABLET (300 MG) DAILY
     Route: 048
     Dates: start: 20090401
  2. METOPROLOL TARTRATE [Concomitant]
     Dosage: 50 MG, UNK
  3. AMLODIPINE [Concomitant]
     Dosage: 5 MG, UNK
  4. HYDRIDE THIAZIDE [Concomitant]

REACTIONS (3)
  - ASTHENIA [None]
  - HYPERSENSITIVITY [None]
  - HYPOTHYROIDISM [None]
